FAERS Safety Report 22356902 (Version 1)
Quarter: 2023Q2

REPORT INFORMATION
  Report Type: Spontaneous
  Country: FR (occurrence: FR)
  Receive Date: 20230523
  Receipt Date: 20230523
  Transmission Date: 20230722
  Serious: Yes (Hospitalization)
  Sender: FDA-Public Use
  Company Number: None

PATIENT
  Age: 66 Year
  Sex: Female
  Weight: 88.2 kg

DRUGS (2)
  1. DAPTOMYCIN [Suspect]
     Active Substance: DAPTOMYCIN
     Indication: Postoperative abscess
     Route: 042
     Dates: start: 20221028, end: 20221124
  2. CEFEPIME [Suspect]
     Active Substance: CEFEPIME HYDROCHLORIDE
     Indication: Postoperative abscess
     Dosage: 2G X3/24H
     Route: 042
     Dates: start: 20221115, end: 20221124

REACTIONS (5)
  - C-reactive protein increased [Recovered/Resolved]
  - Hyperthermia [Recovered/Resolved]
  - Hypersensitivity [Recovered/Resolved]
  - Eosinophilia [Recovered/Resolved]
  - Neutrophilia [Recovered/Resolved]

NARRATIVE: CASE EVENT DATE: 20221124
